FAERS Safety Report 9842263 (Version 1)
Quarter: 2014Q1

REPORT INFORMATION
  Report Type: Spontaneous
  Country: FR (occurrence: US)
  Receive Date: 20140124
  Receipt Date: 20140124
  Transmission Date: 20141002
  Serious: Yes (Hospitalization)
  Sender: FDA-Public Use
  Company Number: US-PFIZER INC-2014015539

PATIENT
  Age: 55 Year
  Sex: Female

DRUGS (3)
  1. GEMCITABINE HYDROCHLORIDE [Suspect]
     Indication: ADENOCARCINOMA PANCREAS
     Dosage: 40 MG/M2, 2X/WEEK
  2. DOCETAXEL [Concomitant]
     Indication: ADENOCARCINOMA PANCREAS
     Dosage: UNK
  3. CAPECITABINE [Concomitant]
     Indication: ADENOCARCINOMA PANCREAS
     Dosage: UNK

REACTIONS (1)
  - Myositis [Recovered/Resolved]
